FAERS Safety Report 5943712-0 (Version None)
Quarter: 2008Q4

REPORT INFORMATION
  Report Type: 
  Country: None (occurrence: None)
  Receive Date: 20081106
  Receipt Date: 20080829
  Transmission Date: 20090506
  Serious: No
  Sender: FDA-Public Use
  Company Number: US-ABBOTT-08P-163-0473092-00

PATIENT
  Age: 37 Year
  Sex: Male
  Weight: 90.8 kg

DRUGS (3)
  1. KALETRA [Suspect]
     Indication: PROPHYLAXIS
     Route: 048
     Dates: start: 20080826
  2. VALSARTAN [Concomitant]
     Indication: BLOOD PRESSURE
     Route: 048
  3. LAMIVUDINE + ZIDOVUDINE [Concomitant]
     Indication: PROPHYLAXIS
     Route: 048
     Dates: start: 20080823

REACTIONS (4)
  - DIARRHOEA [None]
  - FATIGUE [None]
  - MUSCULOSKELETAL DISCOMFORT [None]
  - MYALGIA [None]
